FAERS Safety Report 23251590 (Version 1)
Quarter: 2023Q4

REPORT INFORMATION
  Report Type: Spontaneous
  Country: US (occurrence: None)
  Receive Date: 20231130
  Receipt Date: 20231130
  Transmission Date: 20240109
  Serious: Yes (Hospitalization)
  Sender: FDA-Public Use
  Company Number: None

PATIENT
  Sex: Female

DRUGS (9)
  1. PANTOPRAZOLE SODIUM [Suspect]
     Active Substance: PANTOPRAZOLE SODIUM
     Dosage: FREQUENCY : TWICE A DAY;?
     Route: 048
     Dates: start: 202110
  2. CYCLOBENZAPRINE [Suspect]
     Active Substance: CYCLOBENZAPRINE
     Dosage: FREQUENCY : 3 TIMES A DAY;?
     Route: 048
     Dates: start: 202201
  3. GABAPENTIN [Concomitant]
     Active Substance: GABAPENTIN
  4. KETOCONAZOLE CRE [Concomitant]
  5. DOVATO [Concomitant]
     Active Substance: DOLUTEGRAVIR SODIUM\LAMIVUDINE
  6. HYDROXYINE PAMOATE [Concomitant]
  7. AMOXICILLIN [Concomitant]
     Active Substance: AMOXICILLIN
  8. DULOXETINE [Concomitant]
     Active Substance: DULOXETINE
  9. METHYLPREDNISOLONE DOSE P [Concomitant]

REACTIONS (3)
  - Gastritis [None]
  - Intestinal obstruction [None]
  - Staphylococcal infection [None]
